FAERS Safety Report 22870931 (Version 4)
Quarter: 2023Q4

REPORT INFORMATION
  Report Type: Spontaneous
  Country: US (occurrence: US)
  Receive Date: 20230828
  Receipt Date: 20231121
  Transmission Date: 20240110
  Serious: No
  Sender: FDA-Public Use
  Company Number: US-BAYER-2023A116971

PATIENT
  Age: 26 Year
  Sex: Female
  Weight: 53.379 kg

DRUGS (1)
  1. KYLEENA [Suspect]
     Active Substance: LEVONORGESTREL
     Indication: Intrauterine contraception
     Dosage: 17.5?G/DAY
     Route: 015
     Dates: start: 20230616, end: 20230728

REACTIONS (6)
  - Device expulsion [None]
  - Abdominal pain lower [None]
  - Genital haemorrhage [None]
  - Medical device discomfort [None]
  - Dyspareunia [None]
  - Ovarian cyst [None]

NARRATIVE: CASE EVENT DATE: 20230728
